FAERS Safety Report 9102051 (Version 2)
Quarter: 2013Q2

REPORT INFORMATION
  Report Type: Spontaneous
  Country: CA (occurrence: CA)
  Receive Date: 20130218
  Receipt Date: 20130604
  Transmission Date: 20140414
  Serious: Yes (Other)
  Sender: FDA-Public Use
  Company Number: CA-AMGEN-CANSP2013009392

PATIENT
  Age: 48 Year
  Sex: Female

DRUGS (1)
  1. ENBREL [Suspect]
     Indication: RHEUMATOID ARTHRITIS
     Dosage: UNK
     Dates: start: 20120109

REACTIONS (5)
  - Drug hypersensitivity [Unknown]
  - Respiratory distress [Unknown]
  - Paraesthesia oral [Unknown]
  - Throat irritation [Unknown]
  - Wheezing [Unknown]
